FAERS Safety Report 10199992 (Version 1)
Quarter: 2014Q2

REPORT INFORMATION
  Report Type: Spontaneous
  Country: US (occurrence: US)
  Receive Date: 20140527
  Receipt Date: 20140527
  Transmission Date: 20141212
  Serious: No
  Sender: FDA-Public Use
  Company Number: US-SANOFI-AVENTIS-2013SA086014

PATIENT
  Age: 56 Year
  Sex: Female

DRUGS (3)
  1. RIFADIN IV [Suspect]
     Indication: CELLULITIS
     Route: 058
     Dates: start: 20130819, end: 20130819
  2. RIFADIN IV [Suspect]
     Indication: CELLULITIS
     Route: 065
     Dates: start: 20130820
  3. ZYVOX [Concomitant]
     Route: 065

REACTIONS (2)
  - Inflammation [Not Recovered/Not Resolved]
  - Erythema [Not Recovered/Not Resolved]
